FAERS Safety Report 9884359 (Version 1)
Quarter: 2014Q1

REPORT INFORMATION
  Report Type: Spontaneous
  Country: US (occurrence: None)
  Receive Date: 20140205
  Receipt Date: 20140205
  Transmission Date: 20141002
  Serious: Yes (Death)
  Sender: FDA-Public Use
  Company Number: DEP_01861_2014

PATIENT
  Age: 22 Year
  Sex: Female

DRUGS (3)
  1. GABAPENTIN [Suspect]
     Indication: PRODUCT USED FOR UNKNOWN INDICATION
     Dosage: (DF) UNKNOWN UNTIL NOT CONTINUING?
  2. ACETAMINOPHEN W/DIPHENHYDRAMINE HYDROCHLORIDE [Suspect]
     Indication: PRODUCT USED FOR UNKNOWN INDICATION
     Dosage: (DF) UNKNOWN UNTIL NOT CONTINUING??
  3. NAPROXEN [Suspect]
     Indication: PRODUCT USED FOR UNKNOWN INDICATION
     Dosage: (DF) UNKNOWN UNTIL NOT CONTINUING??

REACTIONS (2)
  - Completed suicide [None]
  - Toxicity to various agents [None]
